FAERS Safety Report 5318167-X (Version None)
Quarter: 2007Q1

REPORT INFORMATION
  Report Type: 
  Country: None (occurrence: None)
  Receive Date: 20070201
  Receipt Date: 20061023
  Transmission Date: 20070707
  Serious: Yes (Hospitalization)
  Sender: FDA-Public Use
  Company Number: MEDI-0005075

PATIENT
  Sex: Male

DRUGS (1)
  1. ETHYOL [Suspect]
     Dosage: SUBCUTANEOUS
     Route: 058

REACTIONS (1)
  - STEVENS-JOHNSON SYNDROME [None]
